FAERS Safety Report 8129229 (Version 3)
Quarter: 2020Q3

REPORT INFORMATION
  Report Type: Report from Study
  Country: KR (occurrence: KR)
  Receive Date: 20110909
  Receipt Date: 20120504
  Transmission Date: 20201105
  Serious: Yes (Hospitalization)
  Sender: FDA-Public Use
  Company Number: KR-JNJFOC-20110900184

PATIENT
  Age: 41 Year
  Sex: Male
  Weight: 73 kg

DRUGS (4)
  1. MEQUITAZINE [Concomitant]
     Active Substance: MEQUITAZINE
     Route: 048
     Dates: start: 20110124
  2. GOLIMUMAB [Suspect]
     Active Substance: GOLIMUMAB
     Route: 058
  3. GOLIMUMAB [Suspect]
     Active Substance: GOLIMUMAB
     Indication: ANKYLOSING SPONDYLITIS
     Route: 058
     Dates: start: 20061102, end: 20110801
  4. ZOLPIDEM TARTRATE. [Concomitant]
     Active Substance: ZOLPIDEM TARTRATE
     Route: 048
     Dates: start: 20100511

REACTIONS (1)
  - Herpes zoster [Recovered/Resolved]

NARRATIVE: CASE EVENT DATE: 20110825
